FAERS Safety Report 17453692 (Version 8)
Quarter: 2023Q4

REPORT INFORMATION
  Report Type: Spontaneous
  Country: DE (occurrence: DE)
  Receive Date: 20200224
  Receipt Date: 20231206
  Transmission Date: 20240109
  Serious: Yes (Other)
  Sender: FDA-Public Use
  Company Number: PHHY2018DE201003

PATIENT
  Sex: Male

DRUGS (25)
  1. DIOVAN [Suspect]
     Active Substance: VALSARTAN
     Indication: Hypertension
     Dosage: 80 MG
     Route: 065
     Dates: start: 20190115
  2. VALSARTAN [Suspect]
     Active Substance: VALSARTAN
     Indication: Product used for unknown indication
     Dosage: 80 MG
     Route: 065
  3. HYDROCHLOROTHIAZIDE\VALSARTAN [Suspect]
     Active Substance: HYDROCHLOROTHIAZIDE\VALSARTAN
     Indication: Hypertension
     Dosage: 0.5 DF, QD (160 MG/ 12.5MG IN MORNING)
     Route: 065
     Dates: start: 20160128, end: 20171217
  4. HYDROCHLOROTHIAZIDE\VALSARTAN [Suspect]
     Active Substance: HYDROCHLOROTHIAZIDE\VALSARTAN
     Dosage: 1 DF, QD (1-0-0) (80MG/ 12.5MG)
     Route: 065
     Dates: start: 20171218, end: 20180721
  5. LOSARTAN POTASSIUM [Suspect]
     Active Substance: LOSARTAN POTASSIUM
     Indication: Hypertension
     Dosage: 50 MG
     Route: 065
     Dates: start: 20180907, end: 20180919
  6. AMLODIPINE BESYLATE [Suspect]
     Active Substance: AMLODIPINE BESYLATE
     Indication: Hypertension
     Dosage: UNK
     Route: 065
     Dates: start: 20181115, end: 20181127
  7. ALLOPURINOL [Concomitant]
     Active Substance: ALLOPURINOL
     Indication: Product used for unknown indication
     Dosage: UNK
     Route: 065
     Dates: start: 20140924, end: 20171029
  8. CHOLECALCIFEROL [Concomitant]
     Active Substance: CHOLECALCIFEROL
     Indication: Product used for unknown indication
     Dosage: UNK
     Route: 065
     Dates: start: 20141230
  9. VALSARTAN [Concomitant]
     Active Substance: VALSARTAN
     Indication: Product used for unknown indication
     Dosage: 1 DF, 80/12.5
     Route: 065
     Dates: start: 20151126, end: 20160127
  10. VALSARTAN [Concomitant]
     Active Substance: VALSARTAN
     Dosage: 0.5 DF, 160/12.5
     Route: 065
     Dates: start: 20160128, end: 20160605
  11. VALSARTAN [Concomitant]
     Active Substance: VALSARTAN
     Dosage: 0.5 UNK, 160/12.5
     Route: 065
     Dates: start: 20160606, end: 20161009
  12. VALSARTAN [Concomitant]
     Active Substance: VALSARTAN
     Dosage: 0.5 UNK, 160/12.5
     Route: 065
     Dates: start: 20161010, end: 20170215
  13. VALSARTAN [Concomitant]
     Active Substance: VALSARTAN
     Dosage: 1 UNK, 80/12.5
     Route: 065
     Dates: start: 20170619, end: 20170913
  14. VALSARTAN [Concomitant]
     Active Substance: VALSARTAN
     Dosage: 1 UNK, 80/12.5
     Route: 065
     Dates: start: 20170914, end: 20171217
  15. VALSARTAN [Concomitant]
     Active Substance: VALSARTAN
     Dosage: 1 UNK, 80/12.5
     Route: 065
     Dates: start: 20171218, end: 20180315
  16. VALSARTAN [Concomitant]
     Active Substance: VALSARTAN
     Dosage: 1 UNK, 80/12.5
     Route: 065
     Dates: start: 20180316, end: 20180515
  17. VALSARTAN [Concomitant]
     Active Substance: VALSARTAN
     Dosage: 1 UNK, 80/12.5, N3-98
     Route: 065
     Dates: start: 20180516, end: 20180719
  18. HYDROCHLOROTHIAZIDE\LOSARTAN POTASSIUM [Concomitant]
     Active Substance: HYDROCHLOROTHIAZIDE\LOSARTAN POTASSIUM
     Indication: Product used for unknown indication
     Dosage: 1 DF, 50/12.5, N3-98
     Route: 065
     Dates: start: 20180721, end: 20180906
  19. DELIX [Concomitant]
     Indication: Product used for unknown indication
     Dosage: 1 DF, 5, N2-45
     Route: 065
     Dates: start: 20180925, end: 20181015
  20. INDAPAMIDE\PERINDOPRIL [Concomitant]
     Active Substance: INDAPAMIDE\PERINDOPRIL
     Indication: Product used for unknown indication
     Dosage: 1 DF, 5/1.25, N1-30
     Route: 065
     Dates: start: 20181016, end: 20181029
  21. VALSARTAN [Concomitant]
     Active Substance: VALSARTAN
     Indication: Product used for unknown indication
     Dosage: 1 DF, 80/12.5, N3-98
     Route: 065
     Dates: start: 20181031, end: 20181102
  22. VALSARTAN [Concomitant]
     Active Substance: VALSARTAN
     Dosage: 1 DF, 80, N3-98
     Route: 065
     Dates: start: 20181103, end: 20181114
  23. VALSARTAN [Concomitant]
     Active Substance: VALSARTAN
     Dosage: 1 DF, 80/12.5, N3-98
     Route: 065
     Dates: start: 20181206, end: 20190114
  24. VALSARTAN [Concomitant]
     Active Substance: VALSARTAN
     Dosage: 1 DF, 80, N3-98
     Route: 065
     Dates: start: 20181206, end: 20190114
  25. EXFORGE [Concomitant]
     Active Substance: AMLODIPINE BESYLATE\VALSARTAN
     Indication: Product used for unknown indication
     Dosage: 0.5 DF, 5/160, N3-98
     Route: 065
     Dates: start: 20181128, end: 20181205

REACTIONS (32)
  - Altered state of consciousness [Unknown]
  - Renal impairment [Unknown]
  - Somnolence [Recovered/Resolved]
  - Mental disorder [Not Recovered/Not Resolved]
  - Fear of death [Not Recovered/Not Resolved]
  - Fear of disease [Not Recovered/Not Resolved]
  - Palpitations [Not Recovered/Not Resolved]
  - Hyperhidrosis [Not Recovered/Not Resolved]
  - Sleep disorder [Not Recovered/Not Resolved]
  - Feeling abnormal [Not Recovered/Not Resolved]
  - Discomfort [Not Recovered/Not Resolved]
  - Anxiety [Not Recovered/Not Resolved]
  - Restlessness [Not Recovered/Not Resolved]
  - Thinking abnormal [Not Recovered/Not Resolved]
  - Apathy [Not Recovered/Not Resolved]
  - Nervousness [Not Recovered/Not Resolved]
  - Anger [Not Recovered/Not Resolved]
  - Pathological doubt [Not Recovered/Not Resolved]
  - Throat clearing [Unknown]
  - Secretion discharge [Unknown]
  - Lipase increased [Unknown]
  - Heart rate increased [Unknown]
  - Feeling hot [Unknown]
  - Pain [Unknown]
  - Chest discomfort [Unknown]
  - Emotional distress [Not Recovered/Not Resolved]
  - Lipids increased [Unknown]
  - Cholelithiasis [Unknown]
  - Glomerular filtration rate decreased [Unknown]
  - Hypertension [Unknown]
  - Myalgia [Recovered/Resolved]
  - Blood creatinine increased [Unknown]

NARRATIVE: CASE EVENT DATE: 20160101
